FAERS Safety Report 11919463 (Version 4)
Quarter: 2016Q2

REPORT INFORMATION
  Report Type: Spontaneous
  Country: US (occurrence: US)
  Receive Date: 20160115
  Receipt Date: 20160630
  Transmission Date: 20160815
  Serious: Yes (Hospitalization, Other)
  Sender: FDA-Public Use
  Company Number: US-JNJFOC-20160101560

PATIENT
  Age: 64 Year
  Sex: Male

DRUGS (2)
  1. XARELTO [Suspect]
     Active Substance: RIVAROXABAN
     Indication: CARDIAC FAILURE CONGESTIVE
     Dosage: 10-20 MG
     Route: 048
     Dates: start: 201403, end: 201404
  2. XARELTO [Suspect]
     Active Substance: RIVAROXABAN
     Indication: CARDIAC FAILURE CONGESTIVE
     Route: 048
     Dates: start: 20140101, end: 20140131

REACTIONS (4)
  - Internal haemorrhage [Unknown]
  - Product use issue [Unknown]
  - Off label use [Unknown]
  - Haemorrhagic stroke [Unknown]

NARRATIVE: CASE EVENT DATE: 20140101
